FAERS Safety Report 25669410 (Version 2)
Quarter: 2025Q3

REPORT INFORMATION
  Report Type: Spontaneous
  Country: US (occurrence: US)
  Receive Date: 20250812
  Receipt Date: 20250909
  Transmission Date: 20251020
  Serious: No
  Sender: APOTEX
  Company Number: US-APOTEX-2025AP010819

PATIENT
  Sex: Female

DRUGS (1)
  1. BRIMONIDINE TARTRATE/TIMOLOL MALEATE OPHTHALMIC SOLUTION [Suspect]
     Active Substance: BRIMONIDINE TARTRATE\TIMOLOL MALEATE
     Indication: Surgery
     Dosage: 2 GTT DROPS, BID (MORNING AND NIGHT)
     Route: 047

REACTIONS (5)
  - Tooth discolouration [Not Recovered/Not Resolved]
  - Salivary hypersecretion [Not Recovered/Not Resolved]
  - Cyst [Not Recovered/Not Resolved]
  - Toothache [Not Recovered/Not Resolved]
  - Dysgeusia [Not Recovered/Not Resolved]
